FAERS Safety Report 5266883-0 (Version None)
Quarter: 2007Q1

REPORT INFORMATION
  Report Type: 
  Country: None (occurrence: None)
  Receive Date: 20070313
  Receipt Date: 20070228
  Transmission Date: 20070707
  Serious: Yes (Other)
  Sender: FDA-Public Use
  Company Number: 2007SP003911

PATIENT
  Age: 44 Year
  Sex: Female

DRUGS (4)
  1. ALBUTEROL [Suspect]
     Indication: ASTHMA
     Dosage: ;UNK;PO
     Route: 048
  2. PREDNISONE [Concomitant]
  3. DUO-MEDIHALER [Concomitant]
  4. OXYGEN [Concomitant]

REACTIONS (4)
  - BONE DISORDER [None]
  - FALL [None]
  - FRACTURE [None]
  - LUNG DISORDER [None]
